FAERS Safety Report 13532666 (Version 3)
Quarter: 2018Q4

REPORT INFORMATION
  Report Type: Spontaneous
  Country: US (occurrence: US)
  Receive Date: 20170510
  Receipt Date: 20181212
  Transmission Date: 20190204
  Serious: Yes (Death, Other)
  Sender: FDA-Public Use
  Company Number: US-009507513-1704USA013702

PATIENT
  Age: 72 Year
  Sex: Male

DRUGS (10)
  1. CITALOPRAM HYDROBROMIDE. [Concomitant]
     Active Substance: CITALOPRAM HYDROBROMIDE
     Indication: PRODUCT USED FOR UNKNOWN INDICATION
     Dosage: 20 MILLIGRAM, 1 IN 1 D
     Route: 065
  2. SENNOSIDES. [Concomitant]
     Active Substance: SENNOSIDES
     Indication: PRODUCT USED FOR UNKNOWN INDICATION
     Dosage: 2 DOSAGE FORM, HS
     Route: 065
  3. CLONAZEPAM. [Concomitant]
     Active Substance: CLONAZEPAM
     Indication: PRODUCT USED FOR UNKNOWN INDICATION
     Dosage: 2 MILLIGRAM (1 MG, 2 IN 1 D)
     Route: 065
  4. NORTHERA [Suspect]
     Active Substance: DROXIDOPA
     Dosage: UNK
     Route: 065
     Dates: end: 20170824
  5. ATORVASTATIN [Concomitant]
     Active Substance: ATORVASTATIN
     Indication: PRODUCT USED FOR UNKNOWN INDICATION
     Dosage: UNK
     Route: 065
  6. NORTHERA [Suspect]
     Active Substance: DROXIDOPA
     Indication: PARKINSON^S DISEASE
     Dosage: 2 CAPSULES 600 MG AT 7 AM AND 12 N AND 1 CAPSULE AT 7 PM
     Route: 048
     Dates: start: 20160813
  7. SEROQUEL [Concomitant]
     Active Substance: QUETIAPINE FUMARATE
     Indication: PRODUCT USED FOR UNKNOWN INDICATION
     Dosage: 50 MILLIGRAM, 1 IN 1 D
     Route: 065
  8. SINEMET [Suspect]
     Active Substance: CARBIDOPA\LEVODOPA
     Indication: PRODUCT USED FOR UNKNOWN INDICATION
     Dosage: 25-100 MG, 3 IN 1 D
     Route: 065
  9. SINEMET [Suspect]
     Active Substance: CARBIDOPA\LEVODOPA
     Dosage: 25-100 MG, HS
  10. LEVETIRACETAM. [Concomitant]
     Active Substance: LEVETIRACETAM
     Indication: PRODUCT USED FOR UNKNOWN INDICATION
     Dosage: UNK UNK, BID
     Route: 065

REACTIONS (4)
  - Erythema [Unknown]
  - Death [Fatal]
  - Rash pruritic [Recovering/Resolving]
  - Prostate infection [Unknown]

NARRATIVE: CASE EVENT DATE: 2017
